FAERS Safety Report 24365277 (Version 6)
Quarter: 2025Q1

REPORT INFORMATION
  Report Type: Report from Study
  Country: US (occurrence: US)
  Receive Date: 20240926
  Receipt Date: 20250303
  Transmission Date: 20250409
  Serious: Yes (Other)
  Sender: JAZZ
  Company Number: US-JAZZ PHARMACEUTICALS-2024-US-015911

PATIENT
  Age: 58 Year
  Sex: Male

DRUGS (15)
  1. XYWAV [Suspect]
     Active Substance: CALCIUM OXYBATE\MAGNESIUM OXYBATE\POTASSIUM OXYBATE\SODIUM OXYBATE
     Indication: Hypersomnia
     Dosage: 3 GRAM, BID
  2. XYWAV [Suspect]
     Active Substance: CALCIUM OXYBATE\MAGNESIUM OXYBATE\POTASSIUM OXYBATE\SODIUM OXYBATE
     Dosage: 3.25 GRAM, BID
  3. XYWAV [Suspect]
     Active Substance: CALCIUM OXYBATE\MAGNESIUM OXYBATE\POTASSIUM OXYBATE\SODIUM OXYBATE
     Route: 048
     Dates: start: 20240726
  4. XYWAV [Suspect]
     Active Substance: CALCIUM OXYBATE\MAGNESIUM OXYBATE\POTASSIUM OXYBATE\SODIUM OXYBATE
     Dosage: 4.5 GRAM, BID
  5. HORIZANT [Concomitant]
     Active Substance: GABAPENTIN ENACARBIL
     Indication: Neuropathy peripheral
     Dates: start: 20240913
  6. HORIZANT [Concomitant]
     Active Substance: GABAPENTIN ENACARBIL
     Indication: Restless legs syndrome
  7. LIDOCAINE 5% EXTRA [Concomitant]
     Indication: Neuropathy peripheral
     Dates: start: 20240920
  8. ACTOS [Concomitant]
     Active Substance: PIOGLITAZONE HYDROCHLORIDE
     Indication: Product used for unknown indication
     Dates: start: 20241003
  9. XYOSTED [Concomitant]
     Active Substance: TESTOSTERONE ENANTHATE
     Indication: Product used for unknown indication
  10. DEXAMETHASONE\OFLOXACIN [Concomitant]
     Active Substance: DEXAMETHASONE\OFLOXACIN
     Indication: Product used for unknown indication
  11. DEXAMETHASONE\OFLOXACIN [Concomitant]
     Active Substance: DEXAMETHASONE\OFLOXACIN
  12. NORVASC [Concomitant]
     Active Substance: AMLODIPINE BESYLATE
     Indication: Product used for unknown indication
  13. RAMELTEON [Concomitant]
     Active Substance: RAMELTEON
     Indication: Product used for unknown indication
     Dosage: 8 MILLIGRAM, QD
  14. QBREXZA [Concomitant]
     Active Substance: GLYCOPYRRONIUM TOSYLATE
     Indication: Product used for unknown indication
  15. KETOCONAZOLE [Concomitant]
     Active Substance: KETOCONAZOLE
     Indication: Product used for unknown indication
     Dates: start: 20250220

REACTIONS (10)
  - Neuropathy peripheral [Unknown]
  - Bone lesion excision [Recovering/Resolving]
  - Elbow operation [Recovering/Resolving]
  - Hyperlipidaemia [Unknown]
  - Cough [Unknown]
  - Oropharyngeal discomfort [Unknown]
  - Migraine [Unknown]
  - Dry mouth [Unknown]
  - Weight decreased [Recovering/Resolving]
  - Product dose omission issue [Recovering/Resolving]

NARRATIVE: CASE EVENT DATE: 20240601
